FAERS Safety Report 6287352-5 (Version None)
Quarter: 2009Q3

REPORT INFORMATION
  Report Type: 
  Country: None (occurrence: None)
  Receive Date: 20090728
  Receipt Date: 20090727
  Transmission Date: 20100115
  Serious: Yes (Life-Threatening, Hospitalization)
  Sender: FDA-Public Use
  Company Number: AU-B.I. PHARMACEUTICALS,INC./RIDGEFIELD-2009-AU-00378AU

PATIENT
  Sex: Female

DRUGS (6)
  1. MICARDIS [Suspect]
     Indication: ACUTE MYOCARDIAL INFARCTION
     Dosage: 40 MG
     Dates: start: 20090110
  2. SERTRALINE HYDROCHLORIDE [Suspect]
     Indication: DEPRESSION
     Dosage: 25 MG
     Dates: start: 20090110
  3. AMILORIDE HCL AND HYDROCHLOROTHIAZIDE [Suspect]
     Indication: ESSENTIAL HYPERTENSION
     Dosage: 1 DOSE DAILY
     Dates: start: 20050110
  4. PANTOPRAZOLE SODIUM [Concomitant]
     Indication: OESOPHAGEAL DISORDER
     Dosage: 40 MG
  5. AMIODARONE HYDROCHLORIDE [Concomitant]
     Indication: ARRHYTHMIA
     Dosage: 100 MG
  6. LEVOTHYROXINE SODIUM [Concomitant]
     Indication: MYXOEDEMA
     Dosage: 100 MG

REACTIONS (2)
  - FALL [None]
  - HYPONATRAEMIA [None]
